FAERS Safety Report 14847324 (Version 1)
Quarter: 2018Q2

REPORT INFORMATION
  Report Type: Report from Study
  Country: DE (occurrence: DE)
  Receive Date: 20180504
  Receipt Date: 20180504
  Transmission Date: 20180711
  Serious: Yes (Other)
  Sender: FDA-Public Use
  Company Number: DE-SA-2018SA115627

PATIENT
  Sex: Male
  Weight: 125 kg

DRUGS (15)
  1. SEEBRI BREEZHALER [Concomitant]
     Active Substance: GLYCOPYRROLATE
     Route: 065
     Dates: start: 20160101
  2. PANTOPRAZOL [Concomitant]
     Active Substance: PANTOPRAZOLE SODIUM
     Route: 048
     Dates: start: 20170101
  3. EXFORGE [Concomitant]
     Active Substance: AMLODIPINE BESYLATE\VALSARTAN
     Dosage: DOSE:1 UNIT(S)
     Route: 048
     Dates: start: 2013
  4. LANTUS [Concomitant]
     Active Substance: INSULIN GLARGINE
  5. NITROLINGUAL [Concomitant]
     Active Substance: NITROGLYCERIN
     Route: 048
     Dates: start: 20160101
  6. EXFORGE HCT [Suspect]
     Active Substance: AMLODIPINE BESYLATE\HYDROCHLOROTHIAZIDE\VALSARTAN
     Dosage: DOSE:1 UNIT(S)
     Route: 048
     Dates: start: 2013
  7. CLOPIDOGREL BISULFATE. [Suspect]
     Active Substance: CLOPIDOGREL BISULFATE
     Route: 048
     Dates: start: 20120101
  8. METFORMIN [Concomitant]
     Active Substance: METFORMIN HYDROCHLORIDE
     Route: 048
     Dates: start: 20080101
  9. FORADIL [Concomitant]
     Active Substance: FORMOTEROL FUMARATE
     Route: 048
     Dates: start: 20080101
  10. TORASEMID [Concomitant]
     Active Substance: TORSEMIDE
     Route: 048
  11. ATORVASTATIN [Concomitant]
     Active Substance: ATORVASTATIN
     Route: 048
     Dates: start: 20170101
  12. BRIVARACETAM [Suspect]
     Active Substance: BRIVARACETAM
     Route: 048
     Dates: start: 20180301
  13. LEVETIRACETAM. [Concomitant]
     Active Substance: LEVETIRACETAM
     Route: 048
     Dates: start: 20170101
  14. BEROTEC [Concomitant]
     Active Substance: FENOTEROL HYDROBROMIDE
     Route: 048
     Dates: start: 20180301
  15. APIDRA [Concomitant]
     Active Substance: INSULIN GLULISINE
     Route: 048
     Dates: start: 20160101

REACTIONS (12)
  - Dyspnoea at rest [Unknown]
  - Dyspnoea [Unknown]
  - Fatigue [Not Recovered/Not Resolved]
  - Blood pressure increased [Unknown]
  - Blood pressure diastolic decreased [Unknown]
  - Coronary artery disease [Unknown]
  - Weight increased [Unknown]
  - Sleep disorder [Not Recovered/Not Resolved]
  - Myocardial infarction [Not Recovered/Not Resolved]
  - Ankle fracture [Unknown]
  - Intervertebral disc protrusion [Unknown]
  - Feeling abnormal [Not Recovered/Not Resolved]

NARRATIVE: CASE EVENT DATE: 2013
